FAERS Safety Report 5308145-9 (Version None)
Quarter: 2007Q2

REPORT INFORMATION
  Report Type: 
  Country: None (occurrence: None)
  Receive Date: 20070423
  Receipt Date: 20070423
  Transmission Date: 20071010
  Serious: Yes (Hospitalization)
  Sender: FDA-Public Use
  Company Number: None

PATIENT
  Age: 67 Year
  Sex: Female
  Weight: 52.1637 kg

DRUGS (2)
  1. ZELNORM [Suspect]
  2. ZOLOFT [Concomitant]

REACTIONS (3)
  - CORONARY ARTERY DISEASE [None]
  - EJECTION FRACTION DECREASED [None]
  - MYOCARDIAL INFARCTION [None]
